FAERS Safety Report 4814041-3 (Version None)
Quarter: 2005Q4

REPORT INFORMATION
  Report Type: 
  Country: None (occurrence: None)
  Receive Date: 20051028
  Receipt Date: 20050620
  Transmission Date: 20060501
  Serious: No
  Sender: FDA-Public Use
  Company Number: US-GLAXOSMITHKLINE-A0563388A

PATIENT
  Sex: Male

DRUGS (6)
  1. SEREVENT [Suspect]
     Indication: CHRONIC OBSTRUCTIVE PULMONARY DISEASE
     Dosage: 50MCG TWICE PER DAY
     Route: 055
  2. ALBUTEROL [Concomitant]
  3. FOSAMAX [Concomitant]
  4. ASCORBIC ACID [Concomitant]
  5. CALCIUM GLUCONATE [Concomitant]
  6. ASPIRIN [Concomitant]

REACTIONS (3)
  - LUNG INFECTION [None]
  - TOTAL LUNG CAPACITY DECREASED [None]
  - WEIGHT DECREASED [None]
